FAERS Safety Report 9133901 (Version 2)
Quarter: 2013Q2

REPORT INFORMATION
  Report Type: Spontaneous
  Country: US (occurrence: US)
  Receive Date: 20130127
  Receipt Date: 20130605
  Transmission Date: 20140414
  Serious: No
  Sender: FDA-Public Use
  Company Number: US-009507513-1301USA004285

PATIENT
  Age: 26 Year
  Sex: Female

DRUGS (1)
  1. IMPLANON [Suspect]
     Indication: CONTRACEPTION
     Route: 059

REACTIONS (4)
  - Device difficult to use [Unknown]
  - Device difficult to use [Unknown]
  - Drug dose omission [Unknown]
  - No adverse event [Unknown]
